FAERS Safety Report 6129199-6 (Version None)
Quarter: 2009Q1

REPORT INFORMATION
  Report Type: 
  Country: None (occurrence: None)
  Receive Date: 20090323
  Receipt Date: 20090323
  Transmission Date: 20090719
  Serious: Yes (Other)
  Sender: FDA-Public Use
  Company Number: None

PATIENT
  Age: 62 Year
  Sex: Female

DRUGS (3)
  1. METFORMIN HCL [Suspect]
     Indication: DIABETES MELLITUS
     Dosage: 1 CAPSULE TWICE A DAY WITH FOOD
     Dates: start: 20090310, end: 20090318
  2. LIPITOR [Concomitant]
  3. DIOVAN HCT [Concomitant]

REACTIONS (4)
  - JOINT SWELLING [None]
  - PRODUCT QUALITY ISSUE [None]
  - SWELLING [None]
  - WEIGHT INCREASED [None]
